FAERS Safety Report 8024063-X (Version None)
Quarter: 2012Q1

REPORT INFORMATION
  Report Type: 
  Country: None (occurrence: None)
  Receive Date: 20120105
  Receipt Date: 20111228
  Transmission Date: 20120608
  Serious: Yes (Other)
  Sender: FDA-Public Use
  Company Number: US-B.I. PHARMACEUTICALS,INC./RIDGEFIELD-2011-BP-28928BP

PATIENT
  Age: 35 Year
  Sex: Female

DRUGS (1)
  1. ZANTAC 150 [Suspect]
     Indication: DYSPEPSIA
     Route: 048
     Dates: start: 20111201, end: 20111227

REACTIONS (7)
  - URTICARIA [None]
  - HYPERSENSITIVITY [None]
  - NAUSEA [None]
  - VISION BLURRED [None]
  - TREMOR [None]
  - LIP SWELLING [None]
  - BLISTER [None]
